FAERS Safety Report 5422175-8 (Version None)
Quarter: 2007Q3

REPORT INFORMATION
  Report Type: 
  Country: None (occurrence: None)
  Receive Date: 20070822
  Receipt Date: 20070820
  Transmission Date: 20080115
  Serious: Yes (Death)
  Sender: FDA-Public Use
  Company Number: DE-ASTRAZENECA-2007AC01554

PATIENT
  Age: 74 Year
  Sex: Female

DRUGS (3)
  1. PROPOFOL [Suspect]
     Dosage: DOSE NOT ADMINISTERED
  2. ZINC OXIDE SHAKE LOTION [Suspect]
     Indication: INFLAMMATION
     Route: 042
     Dates: start: 20050209, end: 20050209
  3. ZINC OXIDE SHAKE LOTION [Suspect]
     Indication: INFECTION PROPHYLAXIS
     Route: 042
     Dates: start: 20050209, end: 20050209

REACTIONS (5)
  - CARDIAC ARREST [None]
  - INCORRECT ROUTE OF DRUG ADMINISTRATION [None]
  - PULMONARY ALVEOLAR HAEMORRHAGE [None]
  - PULMONARY EMBOLISM [None]
  - WRONG DRUG ADMINISTERED [None]
